FAERS Safety Report 7214712-8 (Version None)
Quarter: 2011Q1

REPORT INFORMATION
  Report Type: 
  Country: None (occurrence: None)
  Receive Date: 20110107
  Receipt Date: 20091211
  Transmission Date: 20110831
  Serious: No
  Sender: FDA-Public Use
  Company Number: A0834796A

PATIENT
  Age: 76 Year
  Sex: Female

DRUGS (7)
  1. HYZAAR [Concomitant]
  2. CALCIUM D [Concomitant]
  3. VITAMIN B COMPLEX CAP [Concomitant]
  4. ASPIRIN [Concomitant]
  5. MULTI-VITAMIN [Concomitant]
  6. LOVAZA [Suspect]
     Dosage: 2CAP PER DAY
     Route: 048
     Dates: start: 20090601, end: 20091211
  7. EFFEXOR XR [Concomitant]

REACTIONS (1)
  - ALOPECIA [None]
